FAERS Safety Report 17194123 (Version 6)
Quarter: 2020Q2

REPORT INFORMATION
  Report Type: Spontaneous
  Country: TR (occurrence: TR)
  Receive Date: 20191224
  Receipt Date: 20200406
  Transmission Date: 20200713
  Serious: Yes (Life-Threatening, Other)
  Sender: FDA-Public Use
  Company Number: TR-AMGEN-TURSP2019212747

PATIENT
  Age: 52 Year
  Sex: Female
  Weight: 84 kg

DRUGS (5)
  1. ENBREL [Suspect]
     Active Substance: ETANERCEPT
     Indication: ANKYLOSING SPONDYLITIS
     Dosage: UNK
     Route: 065
     Dates: start: 2009
  2. METHOTREXATE. [Concomitant]
     Active Substance: METHOTREXATE
     Dosage: UNK
  3. ENDOL [INDOMETACIN] [Concomitant]
     Indication: ANKYLOSING SPONDYLITIS
     Dosage: 25 MILLIGRAM, AS NECESSARY
     Route: 048
     Dates: start: 20080801
  4. ENBREL [Suspect]
     Active Substance: ETANERCEPT
     Dosage: 50 MILLIGRAM, QWK
     Route: 058
     Dates: start: 20190529, end: 20191201
  5. DULOKSETIN MYLAN [Concomitant]
     Indication: FIBROMYALGIA
     Dosage: 60 MG, 1X/DAY (WHEN NEEDED)
     Route: 048
     Dates: start: 20171201

REACTIONS (1)
  - Follicle centre lymphoma, follicular grade I, II, III [Not Recovered/Not Resolved]

NARRATIVE: CASE EVENT DATE: 20191201
